FAERS Safety Report 8184839-5 (Version None)
Quarter: 2012Q1

REPORT INFORMATION
  Report Type: 
  Country: None (occurrence: None)
  Receive Date: 20120305
  Receipt Date: 20120301
  Transmission Date: 20120608
  Serious: Yes (Other)
  Sender: FDA-Public Use
  Company Number: US-JNJFOC-20120301189

PATIENT
  Age: 35 Year
  Sex: Female
  Weight: 83.92 kg

DRUGS (4)
  1. NEOSPORIN [Suspect]
     Indication: CHAPPED LIPS
     Dosage: QUARTER-SIZED AMOUNT AND PEA-SIZED AMOUNT
     Route: 061
     Dates: start: 20111128, end: 20111230
  2. LEVONORGESTREL AND ETHINYL ESTRADIOL [Concomitant]
     Indication: CONTRACEPTION
     Route: 065
  3. NEOSPORIN [Suspect]
     Indication: MELANOCYTIC NAEVUS
     Dosage: QUARTER-SIZED AMOUNT AND PEA-SIZED AMOUNT
     Route: 061
     Dates: start: 20111128, end: 20111230
  4. NEOSPORIN [Suspect]
     Indication: MELANOCYTIC NAEVUS
     Dosage: QUARTER-SIZED AMOUNT
     Route: 061
     Dates: start: 20111219, end: 20111230

REACTIONS (3)
  - OFF LABEL USE [None]
  - DERMATITIS ALLERGIC [None]
  - APPLICATION SITE SCAR [None]
